FAERS Safety Report 7572257-X (Version None)
Quarter: 2011Q2

REPORT INFORMATION
  Report Type: 
  Country: None (occurrence: None)
  Receive Date: 20110624
  Receipt Date: 20110613
  Transmission Date: 20111010
  Serious: Yes (Other)
  Sender: FDA-Public Use
  Company Number: PHHY2011JM51625

PATIENT
  Age: 56 Year
  Sex: Female

DRUGS (2)
  1. VITAMIN TAB [Concomitant]
  2. DIOVAN HCT [Suspect]
     Indication: HYPERTENSION
     Dosage: 1 DF, ONE PER DAY
     Route: 048
     Dates: start: 20100830

REACTIONS (2)
  - GLYCOSYLATED HAEMOGLOBIN INCREASED [None]
  - DIABETES MELLITUS [None]
